FAERS Safety Report 6218731-X (Version None)
Quarter: 2009Q2

REPORT INFORMATION
  Report Type: 
  Country: None (occurrence: None)
  Receive Date: 20090608
  Receipt Date: 20090526
  Transmission Date: 20091009
  Serious: Yes (Hospitalization)
  Sender: FDA-Public Use
  Company Number: US-ELI_LILLY_AND_COMPANY-US200905005099

PATIENT
  Sex: Male

DRUGS (2)
  1. BYETTA [Suspect]
     Dosage: 5 UG, UNKNOWN
     Route: 058
     Dates: end: 20090501
  2. BYETTA [Suspect]
     Dosage: 10 UG, UNKNOWN
     Route: 058
     Dates: start: 20090501, end: 20090501

REACTIONS (3)
  - COLITIS [None]
  - DEHYDRATION [None]
  - RENAL FAILURE ACUTE [None]
